FAERS Safety Report 10829136 (Version 3)
Quarter: 2015Q4

REPORT INFORMATION
  Report Type: Spontaneous
  Country: JP (occurrence: JP)
  Receive Date: 20150219
  Receipt Date: 20151014
  Transmission Date: 20160304
  Serious: Yes (Other)
  Sender: FDA-Public Use
  Company Number: JP-BAYER-2015-021532

PATIENT
  Age: 49 Year
  Sex: Female
  Weight: 44 kg

DRUGS (5)
  1. BETAFERON [Suspect]
     Active Substance: INTERFERON BETA-1B
     Indication: MULTIPLE SCLEROSIS
     Dosage: 8 MIU, QOD
     Route: 058
     Dates: start: 20050613
  2. TEGRETOL [Suspect]
     Active Substance: CARBAMAZEPINE
     Indication: TRIGEMINAL NEURALGIA
     Dosage: 100 MG, QD
     Route: 048
     Dates: start: 20121206, end: 20141115
  3. KETAS [Suspect]
     Active Substance: IBUDILAST
     Indication: MULTIPLE SCLEROSIS
     Dosage: 30 MG, QD
     Route: 048
     Dates: start: 20050216
  4. MYSLEE [Suspect]
     Active Substance: ZOLPIDEM TARTRATE
     Indication: INSOMNIA
     Dosage: 10 MG, QD
     Route: 048
     Dates: start: 20050131
  5. THYRADIN S [Suspect]
     Active Substance: LEVOTHYROXINE SODIUM
     Indication: HYPOTHYROIDISM
     Dosage: UNK, ALTERNATELY ADMINISTRATED 112.5 MCG OR 12.5MCG
     Route: 048
     Dates: start: 2004

REACTIONS (4)
  - Thrombotic microangiopathy [None]
  - Oedema peripheral [None]
  - Nephrotic syndrome [Not Recovered/Not Resolved]
  - Protein urine present [None]

NARRATIVE: CASE EVENT DATE: 201410
